FAERS Safety Report 7425508-6 (Version None)
Quarter: 2011Q2

REPORT INFORMATION
  Report Type: 
  Country: None (occurrence: None)
  Receive Date: 20110420
  Receipt Date: 20110414
  Transmission Date: 20111010
  Serious: Yes (Other)
  Sender: FDA-Public Use
  Company Number: NL-PFIZER INC-2011083094

PATIENT
  Age: 60 Year
  Sex: Female

DRUGS (3)
  1. DIOVAN [Concomitant]
     Dosage: UNK
  2. VENLAFAXINE HCL [Suspect]
     Dosage: 37.5 MG, UNK
  3. AMLODIPINE [Concomitant]
     Dosage: UNK

REACTIONS (2)
  - SKIN SWELLING [None]
  - RASH GENERALISED [None]
